FAERS Safety Report 4478665-8 (Version None)
Quarter: 2004Q4

REPORT INFORMATION
  Report Type: 
  Country: None (occurrence: None)
  Receive Date: 20040923
  Receipt Date: 20040602
  Transmission Date: 20050328
  Serious: No
  Sender: FDA-Public Use
  Company Number: USA040669134

PATIENT
  Age: 69 Year
  Sex: Female
  Weight: 91 kg

DRUGS (1)
  1. FORTEO [Suspect]
     Indication: OSTEOPOROSIS
     Dates: start: 20040416

REACTIONS (1)
  - INJECTION SITE HAEMORRHAGE [None]
